FAERS Safety Report 21344778 (Version 1)
Quarter: 2022Q3

REPORT INFORMATION
  Report Type: Spontaneous
  Country: IL (occurrence: IL)
  Receive Date: 20220916
  Receipt Date: 20220916
  Transmission Date: 20221027
  Serious: Yes (Death)
  Sender: FDA-Public Use
  Company Number: IL-BEIGENE, LTD-BGN-2022-005529

PATIENT

DRUGS (1)
  1. BRUKINSA [Suspect]
     Active Substance: ZANUBRUTINIB
     Indication: Marginal zone lymphoma recurrent
     Dosage: 160 MILLIGRAM, BID
     Route: 048

REACTIONS (2)
  - Disease progression [Fatal]
  - Off label use [Unknown]
